FAERS Safety Report 19152141 (Version 1)
Quarter: 2021Q2

REPORT INFORMATION
  Report Type: Report from Study
  Country: MX (occurrence: MX)
  Receive Date: 20210419
  Receipt Date: 20210419
  Transmission Date: 20210717
  Serious: Yes (Other)
  Sender: FDA-Public Use
  Company Number: NVSC2021MX085357

PATIENT
  Sex: Female
  Weight: 58 kg

DRUGS (1)
  1. GALVUS MET [Suspect]
     Active Substance: METFORMIN HYDROCHLORIDE\VILDAGLIPTIN
     Indication: DIABETES MELLITUS
     Dosage: 0.5 DF, BID
     Route: 048
     Dates: start: 2015

REACTIONS (3)
  - Memory impairment [Unknown]
  - Wrong technique in product usage process [Unknown]
  - Senile dementia [Unknown]

NARRATIVE: CASE EVENT DATE: 2015
